FAERS Safety Report 25724847 (Version 1)
Quarter: 2025Q3

REPORT INFORMATION
  Report Type: Spontaneous
  Country: US (occurrence: US)
  Receive Date: 20250826
  Receipt Date: 20250826
  Transmission Date: 20251020
  Serious: Yes (Other)
  Sender: ORGANON
  Company Number: US-ORGANON-O2508USA001803

PATIENT
  Age: 65 Year
  Sex: Male

DRUGS (5)
  1. TOFIDENCE [Suspect]
     Active Substance: TOCILIZUMAB-BAVI
     Indication: Giant cell arteritis
  2. RITUXIMAB [Concomitant]
     Active Substance: RITUXIMAB
     Indication: Immunoglobulin G4 related disease
  3. RITUXIMAB [Concomitant]
     Active Substance: RITUXIMAB
  4. PREDNISONE [Concomitant]
     Active Substance: PREDNISONE
     Indication: Giant cell arteritis
     Dosage: 60 MILLIGRAM, QD
  5. PREDNISONE [Concomitant]
     Active Substance: PREDNISONE
     Dosage: 5 MILLIGRAM, QD

REACTIONS (1)
  - Cutaneous vasculitis [Recovered/Resolved]
